FAERS Safety Report 8075734-0 (Version None)
Quarter: 2012Q1

REPORT INFORMATION
  Report Type: 
  Country: None (occurrence: None)
  Receive Date: 20120117
  Receipt Date: 20120110
  Transmission Date: 20120608
  Serious: Yes (Other)
  Sender: FDA-Public Use
  Company Number: 2011AP001993

PATIENT
  Age: 20 Year
  Sex: Female

DRUGS (4)
  1. FOLIC ACID [Concomitant]
  2. MEFENAMIC ACID [Concomitant]
  3. MICROGYNON (EUGYNON) [Concomitant]
  4. LAMOTRIGINE [Suspect]
     Indication: EPILEPSY
     Dosage: 100 MG;BID;PO
     Route: 048
     Dates: start: 20061201

REACTIONS (5)
  - PLACENTAL DISORDER [None]
  - HAEMATOMA [None]
  - ABORTION INDUCED [None]
  - PREGNANCY [None]
  - MATERNAL DRUGS AFFECTING FOETUS [None]
